FAERS Safety Report 13061672 (Version 1)
Quarter: 2016Q4

REPORT INFORMATION
  Report Type: Spontaneous
  Country: US (occurrence: US)
  Receive Date: 20161226
  Receipt Date: 20161226
  Transmission Date: 20170207
  Serious: No
  Sender: FDA-Public Use
  Company Number: US-NOVEN PHARMACEUTICALS, INC.-US2016001578

PATIENT

DRUGS (4)
  1. MINIVELLE [Suspect]
     Active Substance: ESTRADIOL
     Indication: HORMONE REPLACEMENT THERAPY
     Dosage: 01. MG 2/WK
     Route: 062
     Dates: end: 201606
  2. MINIVELLE [Suspect]
     Active Substance: ESTRADIOL
     Indication: NIGHT SWEATS
     Dosage: USING TWO 0.1 MG PATCHES TOGETHER 2/WK
     Route: 062
     Dates: start: 201606, end: 201608
  3. VITAMIN D [Concomitant]
     Active Substance: CHOLECALCIFEROL
  4. MINIVELLE [Suspect]
     Active Substance: ESTRADIOL
     Indication: HOT FLUSH
     Dosage: USING FOUR PATCHES OF 0.1 MG TOGETHER, 2/WK
     Route: 062
     Dates: start: 201608

REACTIONS (5)
  - Off label use [Unknown]
  - Product adhesion issue [Unknown]
  - Prescribed overdose [Not Recovered/Not Resolved]
  - No adverse event [Unknown]
  - Wrong technique in product usage process [Not Recovered/Not Resolved]

NARRATIVE: CASE EVENT DATE: 2016
